FAERS Safety Report 5454298-1 (Version None)
Quarter: 2007Q3

REPORT INFORMATION
  Report Type: 
  Country: None (occurrence: None)
  Receive Date: 20070917
  Receipt Date: 20070228
  Transmission Date: 20080115
  Serious: Yes (Other)
  Sender: FDA-Public Use
  Company Number: US-ASTRAZENECA-2006UW12234

PATIENT
  Sex: Male
  Weight: 121 kg

DRUGS (4)
  1. SEROQUEL [Suspect]
     Route: 048
  2. ZYPREXA [Suspect]
  3. RISPERDAL [Suspect]
  4. GEODON [Concomitant]

REACTIONS (2)
  - DIABETES MELLITUS [None]
  - PANCREATITIS [None]
